FAERS Safety Report 13988502 (Version 2)
Quarter: 2017Q4

REPORT INFORMATION
  Report Type: Spontaneous
  Country: FR (occurrence: FR)
  Receive Date: 20170919
  Receipt Date: 20171031
  Transmission Date: 20180321
  Serious: Yes (Hospitalization)
  Sender: FDA-Public Use
  Company Number: FR-MERCK KGAA-2026873

PATIENT
  Age: 60 Year
  Sex: Female

DRUGS (1)
  1. NOVOTHYROX [Suspect]
     Active Substance: LEVOTHYROXINE SODIUM
     Indication: HYPOTHYROIDISM
     Route: 048
     Dates: start: 20170518, end: 20170712

REACTIONS (2)
  - Transient ischaemic attack [Recovered/Resolved]
  - Blood thyroid stimulating hormone increased [Recovered/Resolved]

NARRATIVE: CASE EVENT DATE: 20170712
